FAERS Safety Report 6882228-4 (Version None)
Quarter: 2010Q3

REPORT INFORMATION
  Report Type: 
  Country: None (occurrence: None)
  Receive Date: 20100702
  Receipt Date: 20091222
  Transmission Date: 20110219
  Serious: Yes (Other)
  Sender: FDA-Public Use
  Company Number: 2009313571

PATIENT
  Age: 72 Year
  Sex: Female

DRUGS (4)
  1. ZOLOFT [Suspect]
     Dosage: 6.25 MG, 1X/DAY, ORAL
     Route: 048
     Dates: start: 20091120, end: 20091121
  2. NEBIVOLOL HCL [Suspect]
     Dosage: 5 MG, 1X/DAY, ORAL
     Route: 048
     Dates: start: 20080101, end: 20091208
  3. SYNTHROID [Concomitant]
  4. BUTALBITAL (BUTALBITAL) [Concomitant]

REACTIONS (2)
  - DRUG INEFFECTIVE [None]
  - EXTRASYSTOLES [None]
